FAERS Safety Report 9826326 (Version 1)
Quarter: 2014Q1

REPORT INFORMATION
  Report Type: Spontaneous
  Country: US (occurrence: US)
  Receive Date: 20140117
  Receipt Date: 20140117
  Transmission Date: 20141002
  Serious: No
  Sender: FDA-Public Use
  Company Number: US-BIOGENIDEC-2014BI000350

PATIENT
  Sex: Female

DRUGS (8)
  1. TECFIDERA [Suspect]
     Indication: MULTIPLE SCLEROSIS
     Route: 048
     Dates: start: 20130521, end: 20131215
  2. GABAPENTIN [Concomitant]
  3. OXYBUTYNIN [Concomitant]
  4. AMLODIPINE [Concomitant]
  5. SERTRALINE [Concomitant]
  6. FOSAMAX PLUS D [Concomitant]
  7. FOLIC ACID [Concomitant]
  8. METHENAMINE HIPPURATE [Concomitant]

REACTIONS (1)
  - Drug ineffective [Unknown]
